FAERS Safety Report 7458691-7 (Version None)
Quarter: 2011Q2

REPORT INFORMATION
  Report Type: 
  Country: None (occurrence: None)
  Receive Date: 20110504
  Receipt Date: 20110427
  Transmission Date: 20111010
  Serious: Yes (Death, Life-Threatening, Hospitalization)
  Sender: FDA-Public Use
  Company Number: GB-TEVA-279635ISR

PATIENT
  Sex: Male
  Weight: 58.9 kg

DRUGS (14)
  1. ALLOPURINOL [Concomitant]
     Indication: PROPHYLAXIS
     Route: 048
     Dates: start: 20100219
  2. METFORMIN [Concomitant]
     Indication: DIABETES MELLITUS
     Route: 048
     Dates: start: 20060925
  3. LANSOPRAZOLE [Concomitant]
     Indication: ABDOMINAL DISCOMFORT
     Route: 048
     Dates: start: 20070309
  4. BACTRIM [Concomitant]
     Indication: INFECTION PROPHYLAXIS
     Route: 048
     Dates: start: 20060219
  5. ASPIRIN [Concomitant]
     Indication: PROPHYLAXIS
     Route: 048
     Dates: start: 20100604
  6. FINASTERIDE [Concomitant]
     Indication: PROSTATOMEGALY
     Route: 048
     Dates: start: 20080102
  7. DEXAMETHASONE [Suspect]
     Indication: MULTIPLE MYELOMA
     Dates: start: 20100219
  8. TAMSULOSIN HCL [Concomitant]
     Indication: PROSTATOMEGALY
     Route: 048
     Dates: start: 20080102
  9. FENTANYL [Concomitant]
     Indication: SPINAL COMPRESSION FRACTURE
     Dates: start: 20100610
  10. LENALIDOMIDE (CC-5013) [Suspect]
     Indication: MULTIPLE MYELOMA
     Route: 048
     Dates: start: 20100219
  11. LENALIDOMIDE (CC-5013) [Suspect]
     Route: 048
     Dates: start: 20101125, end: 20101213
  12. GLICLAZIDE [Concomitant]
     Indication: TYPE 2 DIABETES MELLITUS
     Route: 048
     Dates: start: 20031027
  13. DEXAMETHASONE [Suspect]
     Dates: start: 20101125, end: 20101213
  14. SIMVASTATIN [Concomitant]
     Indication: HYPERCHOLESTEROLAEMIA
     Route: 048
     Dates: start: 20070222

REACTIONS (3)
  - RESPIRATORY FAILURE [None]
  - H1N1 INFLUENZA [None]
  - NEUTROPENIC SEPSIS [None]
